FAERS Safety Report 21310675 (Version 3)
Quarter: 2022Q4

REPORT INFORMATION
  Report Type: Spontaneous
  Country: JP (occurrence: JP)
  Receive Date: 20220909
  Receipt Date: 20221028
  Transmission Date: 20230113
  Serious: Yes (Disabling, Other)
  Sender: FDA-Public Use
  Company Number: JP-AMGEN-JPNSP2022155068

PATIENT
  Age: 86 Year
  Sex: Female

DRUGS (5)
  1. EVENITY [Suspect]
     Active Substance: ROMOSOZUMAB-AQQG
     Indication: Osteoporosis
     Dosage: 210 MILLIGRAM, QMO
     Route: 058
     Dates: start: 20220304, end: 20220906
  2. ELDECALCITOL [Concomitant]
     Active Substance: ELDECALCITOL
     Dosage: UNK
     Route: 065
  3. METHYLCOBALAMIN [Concomitant]
     Active Substance: METHYLCOBALAMIN
     Dosage: UNK
     Route: 065
  4. OPALMON [Concomitant]
     Active Substance: LIMAPROST
     Dosage: UNK
     Route: 065
  5. LOXOPROFEN SODIUM [Concomitant]
     Active Substance: LOXOPROFEN SODIUM
     Dosage: UNK
     Route: 065

REACTIONS (1)
  - Leukaemia [Not Recovered/Not Resolved]
